APPROVED DRUG PRODUCT: LOTREL
Active Ingredient: AMLODIPINE BESYLATE; BENAZEPRIL HYDROCHLORIDE
Strength: EQ 2.5MG BASE;10MG
Dosage Form/Route: CAPSULE;ORAL
Application: N020364 | Product #002 | TE Code: AB
Applicant: SANDOZ INC
Approved: Mar 3, 1995 | RLD: Yes | RS: No | Type: RX